FAERS Safety Report 13210358 (Version 2)
Quarter: 2017Q2

REPORT INFORMATION
  Report Type: Spontaneous
  Country: JP (occurrence: JP)
  Receive Date: 20170210
  Receipt Date: 20170418
  Transmission Date: 20170830
  Serious: Yes (Death)
  Sender: FDA-Public Use
  Company Number: JP-ELI_LILLY_AND_COMPANY-JP201702003434

PATIENT
  Age: 80 Year
  Sex: Male

DRUGS (3)
  1. ENDOXAN                            /00021101/ [Concomitant]
     Active Substance: CYCLOPHOSPHAMIDE
     Dosage: UNK
     Route: 048
     Dates: start: 20160825, end: 20170123
  2. ADCIRCA [Suspect]
     Active Substance: TADALAFIL
     Indication: PULMONARY HYPERTENSION
     Dosage: 40 MG, QD
     Route: 048
     Dates: start: 20160208, end: 20170123
  3. PREDONINE [Concomitant]
     Active Substance: PREDNISOLONE
     Dosage: UNK
     Route: 048
     Dates: start: 20150624, end: 20170123

REACTIONS (1)
  - Cardio-respiratory arrest [Fatal]

NARRATIVE: CASE EVENT DATE: 20170126
